FAERS Safety Report 22062256 (Version 1)
Quarter: 2023Q1

REPORT INFORMATION
  Report Type: Spontaneous
  Country: CA (occurrence: CA)
  Receive Date: 20230304
  Receipt Date: 20230304
  Transmission Date: 20230417
  Serious: Yes (Other)
  Sender: FDA-Public Use
  Company Number: CA-TEVA-2021-CA-1973525

PATIENT
  Age: 80 Year
  Sex: Male

DRUGS (13)
  1. HYDROCORTISONE [Suspect]
     Active Substance: HYDROCORTISONE
     Indication: Chronic spontaneous urticaria
     Route: 061
  2. CLOBETASOL [Suspect]
     Active Substance: CLOBETASOL
     Indication: Chronic spontaneous urticaria
     Route: 061
  3. CLOBETASOL [Suspect]
     Active Substance: CLOBETASOL
     Route: 061
  4. MONTELUKAST [Suspect]
     Active Substance: MONTELUKAST SODIUM
     Indication: Chronic spontaneous urticaria
     Dosage: 10 MILLIGRAM DAILY;
     Route: 048
  5. CEFUROXIME [Suspect]
     Active Substance: CEFUROXIME
     Indication: Product used for unknown indication
     Route: 065
  6. HYDROCORTISONE [Suspect]
     Active Substance: HYDROCORTISONE
     Indication: Chronic spontaneous urticaria
     Route: 061
  7. HYDROXYZINE [Concomitant]
     Active Substance: HYDROXYZINE HYDROCHLORIDE
     Indication: Chronic spontaneous urticaria
     Dosage: 2 DOSAGE FORMS DAILY;
     Route: 048
  8. MENTHOL [Concomitant]
     Active Substance: MENTHOL
     Indication: Product used for unknown indication
     Route: 065
  9. PREDNISONE [Concomitant]
     Active Substance: PREDNISONE
     Indication: Product used for unknown indication
     Route: 048
  10. REACTINE [Concomitant]
     Indication: Chronic spontaneous urticaria
     Dosage: 2 DOSAGE FORMS DAILY;
     Route: 048
  11. VIADERM-KC [Concomitant]
     Indication: Chronic spontaneous urticaria
     Route: 061
  12. CETIRIZINE HYDROCHLORIDE [Concomitant]
     Active Substance: CETIRIZINE HYDROCHLORIDE
     Indication: Chronic spontaneous urticaria
     Dosage: 2 DOSAGE FORMS DAILY;
     Route: 048
  13. GRAMICIDIN/NEOMYCIN SULFATE/NYSTATIN/TRIAMCINOLONE ACETONIDE [Concomitant]
     Indication: Chronic spontaneous urticaria
     Route: 061

REACTIONS (2)
  - Hypersensitivity [Unknown]
  - Off label use [Unknown]
